FAERS Safety Report 7215031-6 (Version None)
Quarter: 2011Q1

REPORT INFORMATION
  Report Type: 
  Country: None (occurrence: None)
  Receive Date: 20110107
  Receipt Date: 20100803
  Transmission Date: 20110831
  Serious: No
  Sender: FDA-Public Use
  Company Number: A0870819A

PATIENT
  Age: 68 Year
  Sex: Female

DRUGS (20)
  1. COREG CR [Concomitant]
  2. METFORMIN [Concomitant]
  3. JANUVIA [Concomitant]
  4. LOVAZA [Suspect]
     Dosage: 3CAP THREE TIMES PER DAY
     Route: 048
  5. VITAMIN D [Concomitant]
  6. DIGOXIN [Concomitant]
  7. LISINOPRIL [Concomitant]
  8. NEXIUM [Concomitant]
  9. POTASSIUM [Concomitant]
  10. TRICOR [Concomitant]
  11. STARLIX [Concomitant]
  12. FENOFIBRATE [Concomitant]
  13. COUMADIN [Concomitant]
  14. BYETTA [Concomitant]
  15. MULTAQ [Concomitant]
  16. FUROSEMIDE [Concomitant]
  17. NOVOLOG [Concomitant]
  18. LIPITOR [Concomitant]
  19. LEVEMIR [Concomitant]
  20. FOSAMAX [Concomitant]

REACTIONS (2)
  - BLOOD TRIGLYCERIDES INCREASED [None]
  - OVERDOSE [None]
